FAERS Safety Report 20483164 (Version 1)
Quarter: 2022Q1

REPORT INFORMATION
  Report Type: Spontaneous
  Country: JP (occurrence: None)
  Receive Date: 20220217
  Receipt Date: 20220217
  Transmission Date: 20220424
  Serious: Yes (Other)
  Sender: FDA-Public Use
  Company Number: 2022A067070

PATIENT
  Age: 50 Year
  Sex: Female

DRUGS (14)
  1. FASLODEX [Suspect]
     Active Substance: FULVESTRANT
     Indication: Breast cancer female
     Dosage: DOSE UNKNOWN
     Route: 030
     Dates: start: 201508
  2. LYNPARZA [Concomitant]
     Active Substance: OLAPARIB
     Indication: Breast cancer female
     Dosage: DOSE UNKNOWN
     Route: 048
     Dates: start: 202004
  3. TOREMIFENE [Concomitant]
     Active Substance: TOREMIFENE
     Dosage: DOSE UNKNOWN
     Route: 065
     Dates: start: 201506
  4. DENOSUMAB [Concomitant]
     Active Substance: DENOSUMAB
     Dosage: DOSE UNKNOWN
     Route: 065
     Dates: start: 201508, end: 201909
  5. TS-1 [Concomitant]
     Active Substance: GIMERACIL\OTERACIL\TEGAFUR
     Dosage: DOSE UNKNOWN
     Route: 065
     Dates: start: 201607
  6. EXEMESTANE [Concomitant]
     Active Substance: EXEMESTANE
     Dosage: DOSE UNKNOWN
     Route: 065
     Dates: start: 201709
  7. EVEROLIMUS [Concomitant]
     Active Substance: EVEROLIMUS
     Dosage: DOSE UNKNOWN
     Route: 065
     Dates: start: 201709
  8. LETROZOLE [Concomitant]
     Active Substance: LETROZOLE
     Dosage: DOSE UNKNOWN
     Route: 065
     Dates: start: 201711
  9. PALBOCICLIB [Concomitant]
     Active Substance: PALBOCICLIB
     Route: 065
     Dates: start: 201711
  10. FLUOROURACIL [Concomitant]
     Active Substance: FLUOROURACIL
     Dosage: DOSE UNKNOWN
     Route: 065
     Dates: start: 201802
  11. EPIRUBICIN HYDROCHLORIDE [Concomitant]
     Active Substance: EPIRUBICIN HYDROCHLORIDE
     Dosage: DOSE UNKNOWN
     Route: 065
     Dates: start: 201802
  12. CYCLOPHOSPHAMIDE [Concomitant]
     Active Substance: CYCLOPHOSPHAMIDE
     Dosage: DOSE UNKNOWN
     Route: 065
     Dates: start: 201802
  13. DOCETAXEL [Concomitant]
     Active Substance: DOCETAXEL
     Dosage: DOSE UNKNOWN
     Route: 065
     Dates: start: 201805
  14. GEMCITABINE [Concomitant]
     Active Substance: GEMCITABINE
     Dosage: DOSE UNKNOWN
     Route: 065
     Dates: start: 201809

REACTIONS (2)
  - Osteomyelitis [Unknown]
  - Metastases to liver [Unknown]
